FAERS Safety Report 19258820 (Version 2)
Quarter: 2021Q2

REPORT INFORMATION
  Report Type: Spontaneous
  Country: IN (occurrence: IN)
  Receive Date: 20210514
  Receipt Date: 20210623
  Transmission Date: 20210717
  Serious: Yes (Other)
  Sender: FDA-Public Use
  Company Number: IN-ROCHE-2830800

PATIENT
  Age: 61 Year
  Sex: Male

DRUGS (2)
  1. ACCENTRIX [Suspect]
     Active Substance: RANIBIZUMAB
     Indication: SCAR
     Dosage: 0.5/0.05 MG/ML
     Route: 065
     Dates: start: 20200828
  2. ACCENTRIX [Suspect]
     Active Substance: RANIBIZUMAB
     Indication: HAEMATOCRIT
     Route: 065

REACTIONS (3)
  - Endophthalmitis [Unknown]
  - Photophobia [Unknown]
  - Product use in unapproved indication [Unknown]

NARRATIVE: CASE EVENT DATE: 20200907
